FAERS Safety Report 10467128 (Version 1)
Quarter: 2014Q3

REPORT INFORMATION
  Report Type: Report from Study
  Country: US (occurrence: US)
  Receive Date: 20140922
  Receipt Date: 20140922
  Transmission Date: 20150326
  Serious: Yes (Other)
  Sender: FDA-Public Use
  Company Number: US-ABBVIE-14K-163-1285520-00

PATIENT
  Sex: Male

DRUGS (1)
  1. HUMIRA [Suspect]
     Active Substance: ADALIMUMAB
     Indication: COLITIS ULCERATIVE
     Dates: start: 20140226, end: 201407

REACTIONS (2)
  - Drug ineffective [Unknown]
  - Colon dysplasia [Not Recovered/Not Resolved]

NARRATIVE: CASE EVENT DATE: 2014
